FAERS Safety Report 11716699 (Version 2)
Quarter: 2015Q4

REPORT INFORMATION
  Report Type: Spontaneous
  Country: US (occurrence: US)
  Receive Date: 20151104
  Receipt Date: 20151110
  Transmission Date: 20160304
  Serious: Yes (Hospitalization)
  Sender: FDA-Public Use
  Company Number: US-ELI_LILLY_AND_COMPANY-US201108006030

PATIENT
  Age: 75 Year
  Sex: Female
  Weight: 43.99 kg

DRUGS (13)
  1. FORTEO [Suspect]
     Active Substance: TERIPARATIDE
     Indication: OSTEOPOROSIS
     Dosage: 20 UG, QD
     Route: 065
     Dates: start: 201107
  2. ASPIRIN. [Concomitant]
     Active Substance: ASPIRIN
  3. SIMVASTATIN. [Concomitant]
     Active Substance: SIMVASTATIN
     Dosage: 20 MG, UNK
  4. NEXIUM [Concomitant]
     Active Substance: ESOMEPRAZOLE MAGNESIUM
  5. FORTEO [Suspect]
     Active Substance: TERIPARATIDE
     Dosage: 20 UG, QD
  6. METHOCARBAMOL. [Concomitant]
     Active Substance: METHOCARBAMOL
  7. FORTEO [Suspect]
     Active Substance: TERIPARATIDE
     Dosage: 20 UG, QD
  8. FLAXSEED [Concomitant]
     Active Substance: FLAX SEED
  9. VITAMIN D [Concomitant]
     Active Substance: CHOLECALCIFEROL
  10. FORTEO [Suspect]
     Active Substance: TERIPARATIDE
     Dosage: 20 UG, QD
  11. FORTEO [Suspect]
     Active Substance: TERIPARATIDE
     Dosage: 20 UG, QD
  12. FISH OIL [Concomitant]
     Active Substance: FISH OIL
  13. FORTEO [Suspect]
     Active Substance: TERIPARATIDE
     Dosage: 20 UG, QD

REACTIONS (43)
  - Rib fracture [Recovered/Resolved]
  - Gait disturbance [Unknown]
  - Malaise [Unknown]
  - Hypopnoea [Recovered/Resolved]
  - Pain in extremity [Not Recovered/Not Resolved]
  - Limb deformity [Not Recovered/Not Resolved]
  - Limb discomfort [Unknown]
  - Vitreous floaters [Unknown]
  - Pain [Unknown]
  - Communication disorder [Unknown]
  - Sinusitis [Unknown]
  - Wrist deformity [Unknown]
  - Bone disorder [Unknown]
  - Joint injury [Unknown]
  - Dizziness [Unknown]
  - Pain [Recovered/Resolved]
  - Medication error [Unknown]
  - Choking [Unknown]
  - Feeling abnormal [Unknown]
  - Pneumonia [Recovered/Resolved]
  - Bone pain [Unknown]
  - Head discomfort [Unknown]
  - Eye disorder [Unknown]
  - Pain [Unknown]
  - Muscle spasms [Not Recovered/Not Resolved]
  - Dyspnoea [Unknown]
  - Confusional state [Unknown]
  - Nephrolithiasis [Unknown]
  - Fatigue [Unknown]
  - Muscle spasms [Unknown]
  - Incorrect dose administered [Unknown]
  - Lung disorder [Unknown]
  - Angiopathy [Unknown]
  - Feeling abnormal [Unknown]
  - Pyrexia [Recovered/Resolved]
  - Infection [Unknown]
  - Crepitations [Unknown]
  - Muscular weakness [Unknown]
  - Headache [Not Recovered/Not Resolved]
  - Malaise [Unknown]
  - Pain in extremity [Unknown]
  - Fall [Recovered/Resolved]
  - Pulmonary congestion [Unknown]

NARRATIVE: CASE EVENT DATE: 20111020
